FAERS Safety Report 23436498 (Version 1)
Quarter: 2024Q1

REPORT INFORMATION
  Report Type: Spontaneous
  Country: HR (occurrence: HR)
  Receive Date: 20240124
  Receipt Date: 20240124
  Transmission Date: 20240410
  Serious: Yes (Other)
  Sender: FDA-Public Use
  Company Number: HR-862174955-ML2024-00409

PATIENT
  Age: 4 Year
  Sex: Female

DRUGS (3)
  1. AMOXICILLIN [Suspect]
     Active Substance: AMOXICILLIN
     Indication: Upper respiratory tract infection
     Dosage: AT THE AGE OF 4 YEARS
  2. AMOXICILLIN [Suspect]
     Active Substance: AMOXICILLIN
     Dosage: AT THE AGE OF 5 YEARS
  3. AMOXICILLIN [Suspect]
     Active Substance: AMOXICILLIN
     Dosage: AT THE AGE OF 6 YEARS, ORAL PROVOCATION TEST

REACTIONS (1)
  - Enterocolitis [Recovered/Resolved]
